FAERS Safety Report 20835089 (Version 1)
Quarter: 2022Q2

REPORT INFORMATION
  Report Type: Spontaneous
  Country: US (occurrence: US)
  Receive Date: 20220516
  Receipt Date: 20220516
  Transmission Date: 20220721
  Serious: No
  Sender: FDA-Public Use
  Company Number: US-SA-SAC20220510001067

PATIENT
  Age: 42 Year
  Sex: Female

DRUGS (1)
  1. DUPIXENT [Suspect]
     Active Substance: DUPILUMAB
     Indication: Dermatitis atopic
     Dosage: 300 MG, QOW
     Route: 058
     Dates: start: 202101

REACTIONS (8)
  - Pyrexia [Recovered/Resolved]
  - Feeling hot [Recovered/Resolved]
  - Peripheral swelling [Recovered/Resolved]
  - Injection site pain [Unknown]
  - Rash pruritic [Unknown]
  - Therapeutic product effect decreased [Unknown]
  - Dermatitis atopic [Recovered/Resolved]
  - Hysterectomy [Unknown]

NARRATIVE: CASE EVENT DATE: 20210601
